FAERS Safety Report 5272170-7 (Version None)
Quarter: 2007Q1

REPORT INFORMATION
  Report Type: 
  Country: None (occurrence: None)
  Receive Date: 20070320
  Receipt Date: 20070320
  Transmission Date: 20070707
  Serious: Yes (Life-Threatening, Hospitalization)
  Sender: FDA-Public Use
  Company Number: None

PATIENT
  Age: 79 Year
  Sex: Male
  Weight: 69.8539 kg

DRUGS (9)
  1. SIMVASTATIN [Suspect]
     Indication: HYPERCHOLESTEROLAEMIA
     Dosage: 40 MG TWICE DAILY BY PATIENT SHOULD BE ONCE DAILY PO
     Route: 048
  2. NEFAZODONE HCL [Suspect]
     Indication: DEPRESSION
     Dosage: 150-225 MG AT BEDTIME PO
     Route: 048
  3. FAMVIR [Concomitant]
  4. RANITIDINE [Concomitant]
  5. COMBIVENT [Concomitant]
  6. DICYCLOMINE [Concomitant]
  7. ERGOLOID MESYLATES [Concomitant]
  8. PLAVIX [Concomitant]
  9. RHINOCORT [Concomitant]

REACTIONS (2)
  - INCORRECT DOSE ADMINISTERED [None]
  - RHABDOMYOLYSIS [None]
